FAERS Safety Report 9700562 (Version 1)
Quarter: 2013Q4

REPORT INFORMATION
  Report Type: Spontaneous
  Country: FR (occurrence: None)
  Receive Date: 20131119
  Receipt Date: 20131119
  Transmission Date: 20140711
  Serious: Yes (Other)
  Sender: FDA-Public Use
  Company Number: FK201304692

PATIENT
  Sex: Female

DRUGS (3)
  1. CAFFEINE CITRATE [Suspect]
     Indication: APNOEA NEONATAL
     Dosage: 10 MG/KG, LOADING DOSE ON DAY 18
     Dates: start: 2004, end: 2004
  2. FUROSEMIDE (MANUFACTURER UNKNOWN) (FUROSEMIDE) (FUROSEMIDE) [Suspect]
     Indication: OEDEMA
     Dates: start: 2004, end: 2004
  3. DOXAPRAM [Suspect]
     Indication: APNOEA NEONATAL
     Dosage: 1MG/KG, 1 IN 1 HR, INTRAVENOUS
     Dates: start: 2004, end: 2004

REACTIONS (2)
  - Hypokalaemia [None]
  - Oedema [None]
